FAERS Safety Report 6269912-0 (Version None)
Quarter: 2009Q3

REPORT INFORMATION
  Report Type: 
  Country: None (occurrence: None)
  Receive Date: 20090716
  Receipt Date: 20090702
  Transmission Date: 20100115
  Serious: Yes (Other)
  Sender: FDA-Public Use
  Company Number: PHHY2009US29037

PATIENT
  Age: 60 Year
  Sex: Male

DRUGS (2)
  1. ZOMETA [Suspect]
     Dosage: UNK
  2. AREDIA [Suspect]
     Dosage: UNK

REACTIONS (1)
  - OSTEONECROSIS [None]
